FAERS Safety Report 6331702-8 (Version None)
Quarter: 2009Q3

REPORT INFORMATION
  Report Type: 
  Country: None (occurrence: None)
  Receive Date: 20090827
  Receipt Date: 20090817
  Transmission Date: 20100115
  Serious: Yes (Death, Hospitalization)
  Sender: FDA-Public Use
  Company Number: PH-BAXTER-2009BH012790

PATIENT
  Age: 73 Year
  Sex: Male

DRUGS (3)
  1. DIANEAL [Suspect]
     Indication: PERITONEAL DIALYSIS
     Route: 033
     Dates: start: 20090803, end: 20090811
  2. DIANEAL [Suspect]
     Route: 033
     Dates: start: 20070608, end: 20090803
  3. DIANEAL [Suspect]
     Route: 033
     Dates: start: 20090608, end: 20090803

REACTIONS (6)
  - ASTHENIA [None]
  - BLOOD GLUCOSE DECREASED [None]
  - CARDIAC ARREST [None]
  - LOSS OF CONSCIOUSNESS [None]
  - PERITONITIS [None]
  - VITAL FUNCTIONS ABNORMAL [None]
